FAERS Safety Report 8086875 (Version 2)
Quarter: 2012Q4

REPORT INFORMATION
  Report Type: 
  Country: DK (occurrence: DK)
  Receive Date: 20110811
  Receipt Date: 20121205
  Transmission Date: 20130627
  Serious: Yes (Hospitalization, Disabling)
  Sender: FDA-Public Use
  Company Number: DK-ABBOTT-09P-044-0565919-00

PATIENT
  Age: 37 Year
  Sex: Female
  Weight: 53 kg

DRUGS (6)
  1. HUMIRA 40 MG/ 0.8 ML PRE-FILLED SYRINGE [Suspect]
     Indication: CROHN^S DISEASE
     Dates: start: 20090216, end: 20090303
  2. HUMIRA 40 MG/ 0.8 ML PRE-FILLED SYRINGE [Suspect]
     Indication: ARTHRITIS
     Dates: start: 20090209
  3. HUMIRA 40 MG/ 0.8 ML PRE-FILLED SYRINGE [Suspect]
     Dates: start: 20090216, end: 20090303
  4. HUMIRA 40 MG/ 0.8 ML PRE-FILLED SYRINGE [Suspect]
     Dates: start: 200707, end: 200711
  5. IMUREL [Concomitant]
     Indication: CROHN^S DISEASE
     Route: 048
  6. IMUREL [Concomitant]
     Indication: COLITIS ULCERATIVE

REACTIONS (16)
  - Paraesthesia [Not Recovered/Not Resolved]
  - Demyelination [Not Recovered/Not Resolved]
  - Fatigue [Unknown]
  - Dizziness [Unknown]
  - Paraesthesia [Unknown]
  - Dyspnoea [Unknown]
  - Cough [Unknown]
  - Dizziness [Unknown]
  - Sensory disturbance [Unknown]
  - Limb discomfort [Unknown]
  - Fatigue [Unknown]
  - Memory impairment [Unknown]
  - Asthenia [Unknown]
  - Sensory disturbance [Unknown]
  - Eye pain [Recovered/Resolved]
  - Arthritis [Unknown]
